FAERS Safety Report 9691686 (Version 2)
Quarter: 2014Q1

REPORT INFORMATION
  Report Type: Report from Study
  Country: TH (occurrence: TH)
  Receive Date: 20131115
  Receipt Date: 20140204
  Transmission Date: 20141002
  Serious: Yes (Hospitalization)
  Sender: FDA-Public Use
  Company Number: TH-ROCHE-1299441

PATIENT
  Age: 34 Year
  Sex: Female
  Weight: 59 kg

DRUGS (4)
  1. TRASTUZUMAB [Suspect]
     Indication: HER-2 POSITIVE BREAST CANCER
     Dosage: LOADING DOSE PER PROTOCOL
     Route: 042
     Dates: start: 20130611
  2. TRASTUZUMAB [Suspect]
     Dosage: MAINTENANCE DOSE PER PROTOCOL, DATE OF LAST DOSE PRIOR TO SAE: 15/OCT/2013
     Route: 042
  3. PERTUZUMAB [Suspect]
     Indication: HER-2 POSITIVE BREAST CANCER
     Dosage: LOADING DOSE PER PROTOCOL.
     Route: 042
     Dates: start: 20130611
  4. PERTUZUMAB [Suspect]
     Dosage: MAINTENANCE DOSE PER PROTOCOL, DATE OF LAST DOSE PRIOR TO SAE: 15/OCT/2013
     Route: 042

REACTIONS (1)
  - Vertigo [Recovered/Resolved]
